FAERS Safety Report 15692373 (Version 1)
Quarter: 2018Q4

REPORT INFORMATION
  Report Type: Spontaneous
  Country: IT (occurrence: IT)
  Receive Date: 20181205
  Receipt Date: 20181205
  Transmission Date: 20190205
  Serious: Yes (Hospitalization)
  Sender: FDA-Public Use
  Company Number: IT-TEVA-2018-IT-982167

PATIENT
  Age: 59 Year
  Sex: Male

DRUGS (10)
  1. ROCALTROL [Concomitant]
     Active Substance: CALCITRIOL
  2. METHOTREXATE. [Suspect]
     Active Substance: METHOTREXATE
     Indication: PSORIATIC ARTHROPATHY
     Dosage: 10 MILLIGRAM DAILY;
     Route: 065
     Dates: start: 20040612, end: 20040619
  3. TORA DOL [Concomitant]
     Active Substance: KETOROLAC TROMETHAMINE
  4. ASPIRIN. [Concomitant]
     Active Substance: ASPIRIN
     Route: 048
  5. VIOXX [Concomitant]
     Active Substance: ROFECOXIB
     Route: 065
  6. OMEPRAZEN [Concomitant]
     Active Substance: OMEPRAZOLE
     Route: 065
  7. FOLINA [Concomitant]
     Active Substance: FOLIC ACID
     Route: 048
  8. RENAGEL [Concomitant]
     Active Substance: SEVELAMER HYDROCHLORIDE
     Route: 048
  9. DILATREND [Concomitant]
     Active Substance: CARVEDILOL
     Route: 065
  10. MEDROL [Concomitant]
     Active Substance: METHYLPREDNISOLONE
     Route: 065

REACTIONS (3)
  - Gastrointestinal haemorrhage [Not Recovered/Not Resolved]
  - Bone marrow failure [Not Recovered/Not Resolved]
  - Infection susceptibility increased [Not Recovered/Not Resolved]

NARRATIVE: CASE EVENT DATE: 20040623
